FAERS Safety Report 8514672-3 (Version None)
Quarter: 2012Q3

REPORT INFORMATION
  Report Type: 
  Country: None (occurrence: None)
  Receive Date: 20120712
  Receipt Date: 20120712
  Transmission Date: 20120928
  Serious: Yes (Other)
  Sender: FDA-Public Use
  Company Number: None

PATIENT
  Age: 3 Year
  Sex: Female

DRUGS (5)
  1. PLATELETS, HUMAN BLOOD (PLATELETS, HUMAN BLOOD) [Concomitant]
  2. IMMUNE GLOBULIN INTRAVENOUS (HUMAN) [Suspect]
     Indication: SECONDARY IMMUNODEFICIENCY
     Dosage: 2.5 G QD, INFUSION RATE 14:45 INTRAVENOUS (NOT OTHERWISE SPECIFIED)
     Route: 042
     Dates: start: 20120426, end: 20120426
  3. BACTRAMIN (BACTRIM /00086101/) [Concomitant]
  4. RED BLOOD CELLS, CONCENTRATED (RED BLOOD CELLS, CONCENTRATED) [Concomitant]
  5. IMMUNE GLOBULIN INTRAVENOUS (HUMAN) [Suspect]
     Dates: start: 20111228, end: 20111228

REACTIONS (6)
  - ANAPHYLACTIC REACTION [None]
  - PYREXIA [None]
  - FEELING ABNORMAL [None]
  - NAUSEA [None]
  - OFF LABEL USE [None]
  - CHILLS [None]
